FAERS Safety Report 22091145 (Version 1)
Quarter: 2023Q1

REPORT INFORMATION
  Report Type: Spontaneous
  Country: CZ (occurrence: CZ)
  Receive Date: 20230314
  Receipt Date: 20230314
  Transmission Date: 20230417
  Serious: Yes (Hospitalization, Other)
  Sender: FDA-Public Use
  Company Number: CZ-BAYER-2023A032029

PATIENT
  Age: 73 Year
  Sex: Male

DRUGS (1)
  1. XARELTO [Suspect]
     Active Substance: RIVAROXABAN
     Indication: Product used for unknown indication
     Route: 048

REACTIONS (8)
  - Intestinal haemorrhage [Unknown]
  - Diverticular perforation [Unknown]
  - Inflammation [Unknown]
  - Condition aggravated [Unknown]
  - Abdominal pain lower [Not Recovered/Not Resolved]
  - Peritoneal disorder [Unknown]
  - Diverticulum [Unknown]
  - Peritonitis [Unknown]
